FAERS Safety Report 11485165 (Version 1)
Quarter: 2015Q3

REPORT INFORMATION
  Report Type: Spontaneous
  Country: US (occurrence: US)
  Receive Date: 20150903
  Receipt Date: 20150903
  Transmission Date: 20151125
  Serious: No
  Sender: FDA-Public Use
  Company Number: US-ELI_LILLY_AND_COMPANY-US201209004684

PATIENT
  Age: 52 Year
  Sex: Female

DRUGS (1)
  1. CYMBALTA [Suspect]
     Active Substance: DULOXETINE HYDROCHLORIDE
     Indication: FIBROMYALGIA
     Dosage: 60 MG, UNK
     Dates: start: 201208

REACTIONS (8)
  - Food allergy [Unknown]
  - Anger [Unknown]
  - Palpitations [Unknown]
  - Mydriasis [Unknown]
  - Insomnia [Unknown]
  - Nervousness [Unknown]
  - Tension [Unknown]
  - Feeling jittery [Unknown]

NARRATIVE: CASE EVENT DATE: 201209
